FAERS Safety Report 5491688-5 (Version None)
Quarter: 2007Q4

REPORT INFORMATION
  Report Type: 
  Country: None (occurrence: None)
  Receive Date: 20071018
  Receipt Date: 20071018
  Transmission Date: 20080405
  Serious: Yes (Other)
  Sender: FDA-Public Use
  Company Number: None

PATIENT
  Age: 55 Year
  Sex: Female
  Weight: 73.4827 kg

DRUGS (2)
  1. LORAZEPAM [Suspect]
     Indication: INSOMNIA
     Dates: start: 20070919, end: 20071012
  2. LORAZEPAM [Suspect]
     Indication: PAIN
     Dates: start: 20070919, end: 20071012

REACTIONS (6)
  - DRUG WITHDRAWAL SYNDROME [None]
  - HYPERTENSION [None]
  - IMPAIRED WORK ABILITY [None]
  - INSOMNIA [None]
  - NAUSEA [None]
  - PANIC ATTACK [None]
